FAERS Safety Report 7576889-4 (Version None)
Quarter: 2011Q2

REPORT INFORMATION
  Report Type: 
  Country: None (occurrence: None)
  Receive Date: 20110628
  Receipt Date: 20110614
  Transmission Date: 20111010
  Serious: Yes (Other)
  Sender: FDA-Public Use
  Company Number: US-BAYER-2011-051797

PATIENT
  Age: 41 Year
  Sex: Female

DRUGS (1)
  1. MIRENA [Suspect]
     Indication: CONTRACEPTION
     Dosage: 20 ?G, CONT
     Route: 015
     Dates: start: 20110218, end: 20110609

REACTIONS (4)
  - PENILE PAIN [None]
  - VAGINAL HAEMORRHAGE [None]
  - MUSCLE SPASMS [None]
  - DEVICE EXPULSION [None]
